FAERS Safety Report 7968210-4 (Version None)
Quarter: 2011Q4

REPORT INFORMATION
  Report Type: 
  Country: None (occurrence: None)
  Receive Date: 20111122
  Receipt Date: 20110713
  Transmission Date: 20120403
  Serious: No
  Sender: FDA-Public Use
  Company Number: PHHY2011US63597

PATIENT
  Age: 39 Year
  Sex: Female

DRUGS (7)
  1. LOPERAMIDE (LOPERAMIDE) CAPSULE [Concomitant]
  2. TOPIRAMATE [Concomitant]
  3. OMEPRAZOLE [Concomitant]
  4. OXYCODONE AND ACETAMINOPHEN [Concomitant]
  5. ACETAMINOPHEN AND OXYCODONE HCL [Concomitant]
  6. GILENYA [Suspect]
     Indication: MULTIPLE SCLEROSIS
     Dosage: 0.5 MG, DAILY, ORAL
     Route: 048
     Dates: start: 20110707, end: 20110707
  7. AMPHETAMINE SALTS (AMFETAMINE SULFATE) [Concomitant]

REACTIONS (4)
  - HEART RATE DECREASED [None]
  - HEADACHE [None]
  - BLOOD PRESSURE INCREASED [None]
  - NAUSEA [None]
